FAERS Safety Report 10507459 (Version 1)
Quarter: 2014Q4

REPORT INFORMATION
  Report Type: Spontaneous
  Country: GB (occurrence: GB)
  Receive Date: 20141009
  Receipt Date: 20141009
  Transmission Date: 20150528
  Serious: Yes (Disabling)
  Sender: FDA-Public Use
  Company Number: GB-EISAI MEDICAL RESEARCH-EC-2014-000673

PATIENT
  Age: 26 Year
  Sex: Female
  Weight: 85.27 kg

DRUGS (1)
  1. ZONEGRAN [Suspect]
     Active Substance: ZONISAMIDE
     Indication: EPILEPSY
     Route: 048
     Dates: start: 20140806

REACTIONS (5)
  - Abnormal loss of weight [Not Recovered/Not Resolved]
  - Decreased appetite [Not Recovered/Not Resolved]
  - Coordination abnormal [Not Recovered/Not Resolved]
  - Mania [Not Recovered/Not Resolved]
  - Tachyphrenia [Not Recovered/Not Resolved]

NARRATIVE: CASE EVENT DATE: 2014
